FAERS Safety Report 7214302-7 (Version None)
Quarter: 2011Q1

REPORT INFORMATION
  Report Type: 
  Country: None (occurrence: None)
  Receive Date: 20110107
  Receipt Date: 20101229
  Transmission Date: 20110831
  Serious: Yes (Hospitalization)
  Sender: FDA-Public Use
  Company Number: ES-BRISTOL-MYERS SQUIBB COMPANY-15472384

PATIENT
  Age: 74 Year
  Sex: Female

DRUGS (2)
  1. METFORMIN HCL [Suspect]
     Indication: TYPE 2 DIABETES MELLITUS
     Dosage: 850MG FILM COATED TABLET
     Route: 065
     Dates: start: 20090211, end: 20100628
  2. GLYBURIDE [Suspect]
     Indication: TYPE 2 DIABETES MELLITUS
     Dosage: 5MG TABLET
     Route: 065
     Dates: start: 20100416, end: 20100628

REACTIONS (3)
  - HYPOGLYCAEMIA [None]
  - HEMIPARESIS [None]
  - DYSARTHRIA [None]
